FAERS Safety Report 18244030 (Version 2)
Quarter: 2020Q4

REPORT INFORMATION
  Report Type: Spontaneous
  Country: US (occurrence: US)
  Receive Date: 20200909
  Receipt Date: 20201223
  Transmission Date: 20210113
  Serious: No
  Sender: FDA-Public Use
  Company Number: US-SA-2020SA243620

PATIENT

DRUGS (1)
  1. DUPIXENT [Suspect]
     Active Substance: DUPILUMAB
     Indication: DERMATITIS ATOPIC
     Dosage: 300 MG, QOW
     Route: 058
     Dates: start: 20200730, end: 20201119

REACTIONS (10)
  - Pruritus [Unknown]
  - Skin fissures [Recovering/Resolving]
  - Rebound eczema [Unknown]
  - Dry skin [Unknown]
  - Pruritus [Recovering/Resolving]
  - Vision blurred [Recovered/Resolved]
  - Dry eye [Unknown]
  - Dry skin [Recovering/Resolving]
  - Eye pruritus [Unknown]
  - Skin exfoliation [Unknown]

NARRATIVE: CASE EVENT DATE: 2020
